FAERS Safety Report 8949112 (Version 1)
Quarter: 2012Q4

REPORT INFORMATION
  Report Type: 
  Country: US (occurrence: US)
  Receive Date: 20121206
  Receipt Date: 20121206
  Transmission Date: 20130627
  Serious: No
  Sender: FDA-Public Use
  Company Number: US-PFIZER INC-2012263743

PATIENT
  Sex: Female

DRUGS (2)
  1. LYRICA [Suspect]
     Indication: PAIN
     Dosage: 150-200 mg every 4 hours
  2. LYRICA [Suspect]
     Indication: MOVEMENT DISORDER
     Dosage: 75 mg, 4x/day

REACTIONS (1)
  - Off label use [Unknown]
